FAERS Safety Report 14321968 (Version 1)
Quarter: 2017Q4

REPORT INFORMATION
  Report Type: Report from Study
  Country: JP (occurrence: JP)
  Receive Date: 20171225
  Receipt Date: 20171225
  Transmission Date: 20180321
  Serious: Yes (Other)
  Sender: FDA-Public Use
  Company Number: JP-AMGEN-JPNCT2017190272

PATIENT
  Age: 77 Year
  Sex: Female

DRUGS (3)
  1. HEPARIN [Concomitant]
     Active Substance: HEPARIN SODIUM
     Dosage: UNK
     Route: 065
  2. DARBEPOETIN ALFA [Suspect]
     Active Substance: DARBEPOETIN ALFA
     Indication: PRODUCT USED FOR UNKNOWN INDICATION
     Dosage: UNK
     Route: 042
     Dates: start: 20170307
  3. NAOTAMIN [Concomitant]
     Active Substance: NAFAMOSTAT
     Dosage: UNK
     Route: 065

REACTIONS (8)
  - Platelet count decreased [Recovered/Resolved]
  - Haematochezia [Recovered/Resolved]
  - Reticulocyte percentage decreased [Recovered/Resolved]
  - Nasopharyngitis [Recovered/Resolved]
  - Haematochezia [Unknown]
  - Ligamentitis [Recovered/Resolved]
  - Blood alkaline phosphatase increased [Recovered/Resolved]
  - Blood parathyroid hormone increased [Unknown]

NARRATIVE: CASE EVENT DATE: 2017
